FAERS Safety Report 23460535 (Version 1)
Quarter: 2024Q1

REPORT INFORMATION
  Report Type: Report from Study
  Country: US (occurrence: US)
  Receive Date: 20240131
  Receipt Date: 20240131
  Transmission Date: 20240410
  Serious: Yes (Other)
  Sender: FDA-Public Use
  Company Number: US-JNJFOC-20240168228

PATIENT
  Age: 5 Decade
  Sex: Female

DRUGS (6)
  1. SPRAVATO [Suspect]
     Active Substance: ESKETAMINE
     Indication: Depression
     Dosage: 56 MG, 3 TOTAL DOSES
     Dates: start: 20230131, end: 20230210
  2. SPRAVATO [Suspect]
     Active Substance: ESKETAMINE
     Dosage: 84 MG, 1 TOTAL DOSES
     Dates: start: 20230207, end: 20230207
  3. SPRAVATO [Suspect]
     Active Substance: ESKETAMINE
     Dosage: 56MG, 2 TOTAL DOSES
     Dates: start: 20230214, end: 20230217
  4. SPRAVATO [Suspect]
     Active Substance: ESKETAMINE
     Dosage: 70 MG, 1 TOTAL DOSES
     Dates: start: 20230221, end: 20230221
  5. SPRAVATO [Suspect]
     Active Substance: ESKETAMINE
     Dosage: 84 MG, 23 TOTAL DOSES
     Dates: start: 20230224, end: 20230926
  6. SPRAVATO [Suspect]
     Active Substance: ESKETAMINE
     Dosage: 28 MG, 1 TOTAL DOSES
     Dates: start: 20231117, end: 20231117

REACTIONS (1)
  - Hallucination [Unknown]
